FAERS Safety Report 17746452 (Version 1)
Quarter: 2020Q2

REPORT INFORMATION
  Report Type: Spontaneous
  Country: US (occurrence: US)
  Receive Date: 20200505
  Receipt Date: 20200505
  Transmission Date: 20200714
  Serious: No
  Sender: FDA-Public Use
  Company Number: None

PATIENT
  Age: 74 Year
  Sex: Male
  Weight: 93.15 kg

DRUGS (10)
  1. JANUVIA [Suspect]
     Active Substance: SITAGLIPTIN PHOSPHATE
     Indication: DIABETES MELLITUS
     Dosage: ?          QUANTITY:1 TABLET(S);?
     Route: 048
  2. CENTRUM SILVER [Concomitant]
     Active Substance: MINERALS\VITAMINS
  3. GLIPIZIDE 10 MG [Concomitant]
     Active Substance: GLIPIZIDE
  4. FISH OIL [Concomitant]
     Active Substance: FISH OIL
  5. VITAMIN B12 [Concomitant]
     Active Substance: CYANOCOBALAMIN
  6. ALBUTEROL HFA [Concomitant]
     Active Substance: ALBUTEROL SULFATE
  7. VITAMIN C [Concomitant]
     Active Substance: ASCORBIC ACID
  8. GINKO BILOBA [Concomitant]
     Active Substance: GINKGO
  9. VITAMIN D3 [Concomitant]
     Active Substance: CHOLECALCIFEROL
  10. OSTEO BIFLEX [Concomitant]
     Active Substance: CHONDROITIN SULFATE A\GLUCOSAMINE

REACTIONS (3)
  - Therapy interrupted [None]
  - Constipation [None]
  - Economic problem [None]

NARRATIVE: CASE EVENT DATE: 20200301
